FAERS Safety Report 8337528-8 (Version None)
Quarter: 2012Q2

REPORT INFORMATION
  Report Type: 
  Country: None (occurrence: None)
  Receive Date: 20120504
  Receipt Date: 20101214
  Transmission Date: 20120825
  Serious: Yes (Hospitalization)
  Sender: FDA-Public Use
  Company Number: FR-ROCHE-748538

PATIENT
  Age: 50 Year
  Sex: Female

DRUGS (2)
  1. AVASTIN [Suspect]
     Indication: BREAST CANCER METASTATIC
     Route: 042
  2. TAXOL [Concomitant]
     Indication: BREAST CANCER METASTATIC
     Route: 042

REACTIONS (3)
  - EJECTION FRACTION DECREASED [None]
  - BONE MARROW FAILURE [None]
  - SEPTIC SHOCK [None]
